FAERS Safety Report 4477516-5 (Version None)
Quarter: 2004Q4

REPORT INFORMATION
  Report Type: 
  Country: None (occurrence: None)
  Receive Date: 20041018
  Receipt Date: 20040907
  Transmission Date: 20050328
  Serious: Yes (Hospitalization)
  Sender: FDA-Public Use
  Company Number: GB-GLAXOSMITHKLINE-B0344757A

PATIENT
  Age: 48 Year
  Sex: Male

DRUGS (5)
  1. SEROXAT [Suspect]
     Dosage: 30MG PER DAY
     Route: 048
     Dates: end: 20040927
  2. CHLORPROMAZINE [Suspect]
     Dosage: 100MG FOUR TIMES PER DAY
     Route: 048
  3. CLONAZEPAM [Suspect]
     Dosage: 2MG PER DAY
     Route: 048
  4. CLOZARIL [Suspect]
     Route: 048
     Dates: end: 20040901
  5. ALCOHOL [Concomitant]

REACTIONS (1)
  - OVERDOSE [None]
